FAERS Safety Report 23847280 (Version 1)
Quarter: 2024Q2

REPORT INFORMATION
  Report Type: Report from Study
  Country: CA (occurrence: CA)
  Receive Date: 20240513
  Receipt Date: 20240513
  Transmission Date: 20240716
  Serious: Yes (Other)
  Sender: FDA-Public Use
  Company Number: CA-002147023-NVSC2024CA008723

PATIENT
  Age: 55 Year
  Sex: Female

DRUGS (1)
  1. KESIMPTA [Suspect]
     Active Substance: OFATUMUMAB
     Indication: Relapsing-remitting multiple sclerosis
     Dosage: 20 MG
     Route: 058
     Dates: start: 20240107

REACTIONS (8)
  - Relapsing-remitting multiple sclerosis [Unknown]
  - Paraesthesia [Unknown]
  - Fatigue [Unknown]
  - Muscle spasticity [Unknown]
  - Disease progression [Unknown]
  - Diverticulitis [Unknown]
  - Influenza [Unknown]
  - Nasopharyngitis [Recovering/Resolving]

NARRATIVE: CASE EVENT DATE: 20240107
